FAERS Safety Report 11122502 (Version 1)
Quarter: 2015Q2

REPORT INFORMATION
  Report Type: Spontaneous
  Country: US (occurrence: None)
  Receive Date: 20150518
  Receipt Date: 20150518
  Transmission Date: 20150821
  Serious: Yes (Disabling)
  Sender: FDA-Public Use
  Company Number: None

PATIENT
  Age: 40 Year
  Sex: Male

DRUGS (5)
  1. SEDATED [Concomitant]
  2. IBUPROFEN. [Concomitant]
     Active Substance: IBUPROFEN
  3. METHYLPREDNISOLONE 4MG NOT KNOWN-PROBABLY GENERIC [Suspect]
     Active Substance: METHYLPREDNISOLONE
     Indication: ALLERGIC RESPIRATORY DISEASE
     Dosage: VARIOUS- DOS PAK, DOS PAK LOWER BY DAY
     Route: 048
     Dates: start: 20131005, end: 20131012
  4. METHYLPREDNISOLONE 4MG NOT KNOWN-PROBABLY GENERIC [Suspect]
     Active Substance: METHYLPREDNISOLONE
     Indication: UPPER RESPIRATORY TRACT CONGESTION
     Dosage: VARIOUS- DOS PAK, DOS PAK LOWER BY DAY
     Route: 048
     Dates: start: 20131005, end: 20131012
  5. METHYLPREDNISOLONE 4MG NOT KNOWN-PROBABLY GENERIC [Suspect]
     Active Substance: METHYLPREDNISOLONE
     Indication: COUGH
     Dosage: VARIOUS- DOS PAK, DOS PAK LOWER BY DAY
     Route: 048
     Dates: start: 20131005, end: 20131012

REACTIONS (1)
  - Osteonecrosis [None]

NARRATIVE: CASE EVENT DATE: 20131012
